FAERS Safety Report 7796133-2 (Version None)
Quarter: 2011Q4

REPORT INFORMATION
  Report Type: 
  Country: None (occurrence: None)
  Receive Date: 20111004
  Receipt Date: 20111003
  Transmission Date: 20120403
  Serious: Yes (Other)
  Sender: FDA-Public Use
  Company Number: CA-ABBOTT-11P-028-0852137-00

PATIENT
  Sex: Female
  Weight: 93.07 kg

DRUGS (5)
  1. METOPROLOL TARTRATE [Concomitant]
     Indication: PRODUCT USED FOR UNKNOWN INDICATION
     Dosage: BID
  2. CRESTOR [Concomitant]
     Indication: PRODUCT USED FOR UNKNOWN INDICATION
  3. MAVIK [Suspect]
     Indication: ESSENTIAL HYPERTENSION
     Dosage: 0 DOSES HAVE BEEN MISSED BETWEEN THE VISITS.
     Route: 048
     Dates: start: 20100805
  4. HYDROCHLOROTHIAZIDE [Concomitant]
     Indication: PRODUCT USED FOR UNKNOWN INDICATION
  5. MAVIK [Suspect]
     Dates: start: 20110421

REACTIONS (1)
  - BLOOD PRESSURE INADEQUATELY CONTROLLED [None]
